FAERS Safety Report 5612312-4 (Version None)
Quarter: 2008Q1

REPORT INFORMATION
  Report Type: 
  Country: None (occurrence: None)
  Receive Date: 20080204
  Receipt Date: 20080130
  Transmission Date: 20080703
  Serious: Yes (Hospitalization, Other)
  Sender: FDA-Public Use
  Company Number: US-ASTRAZENECA-2007UW18509

PATIENT
  Age: 13956 Day
  Sex: Female
  Weight: 100 kg

DRUGS (5)
  1. SEROQUEL [Suspect]
     Indication: BIPOLAR DISORDER
     Route: 048
     Dates: start: 20030401, end: 20070711
  2. SEROQUEL [Suspect]
     Indication: DEPRESSION
     Route: 048
     Dates: start: 20030401, end: 20070711
  3. SEROQUEL [Suspect]
     Route: 048
     Dates: start: 20030401, end: 20070711
  4. SEROQUEL [Suspect]
     Route: 048
     Dates: start: 20030401, end: 20070711
  5. ABILIFY [Concomitant]
     Dates: start: 20070601

REACTIONS (4)
  - BLINDNESS [None]
  - DIABETES MELLITUS [None]
  - EYE DISORDER [None]
  - TRANSFUSION [None]
